FAERS Safety Report 6565538-X (Version None)
Quarter: 2010Q1

REPORT INFORMATION
  Report Type: 
  Country: None (occurrence: None)
  Receive Date: 20100201
  Receipt Date: 20100119
  Transmission Date: 20100710
  Serious: Yes (Death, Hospitalization)
  Sender: FDA-Public Use
  Company Number: BR-GENENTECH-296997

PATIENT
  Sex: Male
  Weight: 70 kg

DRUGS (11)
  1. RITUXIMAB [Suspect]
     Indication: JUVENILE ARTHRITIS
     Dosage: UNK
     Route: 065
     Dates: end: 20090401
  2. TOCILIZUMAB [Suspect]
     Indication: JUVENILE ARTHRITIS
     Dosage: 8 MG/KG, UNK
     Route: 042
     Dates: start: 20090614, end: 20100104
  3. ARAVA [Suspect]
     Indication: JUVENILE ARTHRITIS
     Dosage: UNK
     Route: 065
  4. HUMIRA [Suspect]
     Indication: JUVENILE ARTHRITIS
     Dosage: UNK
     Route: 065
  5. PREDNISONE [Concomitant]
     Indication: JUVENILE ARTHRITIS
     Dosage: 30 MG, UNK
  6. OSCAL D [Concomitant]
     Indication: OSTEOPOROSIS PROPHYLAXIS
     Dosage: UNK
  7. CITALOPRAM [Concomitant]
     Indication: ANXIETY
     Dosage: UNK
  8. CLONAZEPAM [Concomitant]
     Indication: ANXIETY
     Dosage: UNK
  9. METHOTREXATE [Concomitant]
     Indication: DRUG USE FOR UNKNOWN INDICATION
     Dosage: UNK
  10. CHLOROQUINE PHOSPHATE [Concomitant]
     Indication: DRUG USE FOR UNKNOWN INDICATION
     Dosage: UNK
  11. TYLEX (BRAZIL) [Concomitant]
     Indication: PAIN

REACTIONS (7)
  - DEHYDRATION [None]
  - DIARRHOEA [None]
  - GENERALISED OEDEMA [None]
  - MEGACOLON [None]
  - MULTI-ORGAN FAILURE [None]
  - PAIN [None]
  - PYREXIA [None]
